FAERS Safety Report 9298490 (Version 1)
Quarter: 2013Q2

REPORT INFORMATION
  Report Type: Spontaneous
  Country: US (occurrence: None)
  Receive Date: 20130515
  Receipt Date: 20130515
  Transmission Date: 20140414
  Serious: Yes (Death, Hospitalization, Other)
  Sender: FDA-Public Use
  Company Number: ADR-2013-00821

PATIENT
  Age: 52 Year
  Sex: Male

DRUGS (1)
  1. BACLOFEN INTRATHECAL [Suspect]
     Indication: MUSCLE SPASTICITY

REACTIONS (7)
  - Pneumonia [None]
  - Device failure [None]
  - Multi-organ failure [None]
  - Cardiac failure [None]
  - Respiratory failure [None]
  - Malaise [None]
  - Cardiac arrest [None]
